FAERS Safety Report 4716051-3 (Version None)
Quarter: 2005Q3

REPORT INFORMATION
  Report Type: 
  Country: None (occurrence: None)
  Receive Date: 20050718
  Receipt Date: 20050707
  Transmission Date: 20060218
  Serious: Yes (Other)
  Sender: FDA-Public Use
  Company Number: NL-BRISTOL-MYERS SQUIBB COMPANY-13027883

PATIENT
  Age: 49 Year
  Sex: Female

DRUGS (6)
  1. NEWACE-10 TABS [Suspect]
  2. AMLODIPINUM [Suspect]
  3. OXAZEPAMUM [Suspect]
     Dosage: 10 MG X 3/D WHEN NEEDED
  4. SPIRIVA [Suspect]
  5. SYMBICORT [Suspect]
     Dosage: DOSAGE FORM: 400 MG + 12 MG
  6. TRIODEEN [Suspect]

REACTIONS (1)
  - POLYNEUROPATHY [None]
